FAERS Safety Report 14131949 (Version 3)
Quarter: 2017Q4

REPORT INFORMATION
  Report Type: Report from Study
  Country: None (occurrence: BR)
  Receive Date: 20171026
  Receipt Date: 20171203
  Transmission Date: 20180321
  Serious: Yes (Hospitalization, Disabling)
  Sender: FDA-Public Use
  Company Number: BR-ABBVIE-17K-020-2138468-00

PATIENT
  Age: 23 Year
  Sex: Female
  Weight: 55 kg

DRUGS (1)
  1. HUMIRA [Suspect]
     Active Substance: ADALIMUMAB
     Indication: PSORIASIS
     Route: 058
     Dates: start: 20170828, end: 2017

REACTIONS (11)
  - Wound secretion [Recovered/Resolved]
  - Erythema [Not Recovered/Not Resolved]
  - Gait inability [Recovered/Resolved]
  - Dermatitis [Recovered/Resolved]
  - Skin wound [Recovered/Resolved]
  - Peripheral swelling [Recovered/Resolved]
  - Skin fissures [Recovered/Resolved]
  - Wound haemorrhage [Recovered/Resolved]
  - Skin induration [Not Recovered/Not Resolved]
  - Malaise [Unknown]
  - Wound complication [Recovered/Resolved]

NARRATIVE: CASE EVENT DATE: 2017
